FAERS Safety Report 9302723 (Version 1)
Quarter: 2013Q2

REPORT INFORMATION
  Report Type: Report from Study
  Country: AR (occurrence: AR)
  Receive Date: 20130522
  Receipt Date: 20130522
  Transmission Date: 20140414
  Serious: Yes (Hospitalization, Other)
  Sender: FDA-Public Use
  Company Number: PHHY2013AR050672

PATIENT
  Age: 79 Year
  Sex: Female

DRUGS (2)
  1. STALEVO [Suspect]
     Indication: PARKINSON^S DISEASE
     Dosage: 300 MG (150+150), DAILY
     Route: 048
     Dates: start: 2008
  2. STALEVO [Suspect]
     Dosage: 200 MG (150+50), DAILY
     Route: 048

REACTIONS (6)
  - Road traffic accident [Not Recovered/Not Resolved]
  - Tibia fracture [Not Recovered/Not Resolved]
  - Pain in extremity [Not Recovered/Not Resolved]
  - Fibula fracture [Unknown]
  - Foot fracture [Unknown]
  - Lower limb fracture [Unknown]
